FAERS Safety Report 5056049-1 (Version None)
Quarter: 2006Q3

REPORT INFORMATION
  Report Type: 
  Country: None (occurrence: None)
  Receive Date: 20060717
  Receipt Date: 20060717
  Transmission Date: 20061208
  Serious: Yes (Life-Threatening, Hospitalization)
  Sender: FDA-Public Use
  Company Number: None

PATIENT
  Age: 20 Year
  Sex: Male
  Weight: 70.9 kg

DRUGS (5)
  1. KALETRA [Suspect]
     Indication: HIV INFECTION
     Dosage: 200MG/50MG  4 TABS DAILY  PO
     Route: 048
     Dates: start: 20060512, end: 20060630
  2. EPZICOM [Suspect]
     Indication: HIV INFECTION
     Dosage: 600MG/300MG  1 TAB DAILY  PO
     Route: 048
     Dates: start: 20060512, end: 20060629
  3. BACTRIM [Concomitant]
  4. PENICILLIN VK [Concomitant]
  5. PERCOCET [Concomitant]

REACTIONS (11)
  - ANAEMIA [None]
  - BACK PAIN [None]
  - BLOOD PRESSURE INCREASED [None]
  - HYPERTENSION [None]
  - IDIOPATHIC THROMBOCYTOPENIC PURPURA [None]
  - PERITONSILLAR ABSCESS [None]
  - PHARYNGITIS STREPTOCOCCAL [None]
  - PYREXIA [None]
  - RETROPHARYNGEAL ABSCESS [None]
  - TONSILLAR HAEMORRHAGE [None]
  - TONSILLITIS [None]
